FAERS Safety Report 7864194-8 (Version None)
Quarter: 2011Q4

REPORT INFORMATION
  Report Type: 
  Country: None (occurrence: None)
  Receive Date: 20111028
  Receipt Date: 20111024
  Transmission Date: 20120403
  Serious: Yes (Other)
  Sender: FDA-Public Use
  Company Number: US-PFIZER INC-2011258729

PATIENT
  Sex: Female

DRUGS (1)
  1. PRISTIQ [Suspect]
     Dosage: UNK

REACTIONS (6)
  - COLON CANCER [None]
  - DIABETES MELLITUS [None]
  - PRODUCT SOLUBILITY ABNORMAL [None]
  - ANAEMIA [None]
  - INTESTINAL PERFORATION [None]
  - OBESITY [None]
